FAERS Safety Report 16208030 (Version 2)
Quarter: 2019Q4

REPORT INFORMATION
  Report Type: Spontaneous
  Country: JP (occurrence: JP)
  Receive Date: 20190417
  Receipt Date: 20191023
  Transmission Date: 20200122
  Serious: Yes (Other)
  Sender: FDA-Public Use
  Company Number: JP-EISAI MEDICAL RESEARCH-EC-2019-054900

PATIENT
  Age: 69 Year
  Sex: Male

DRUGS (2)
  1. HALAVEN [Suspect]
     Active Substance: ERIBULIN MESYLATE
     Dosage: DOSE REDUCED
     Route: 041
     Dates: start: 2017, end: 20170509
  2. HALAVEN [Suspect]
     Active Substance: ERIBULIN MESYLATE
     Indication: MYXOID LIPOSARCOMA
     Route: 041
     Dates: start: 20170425, end: 2017

REACTIONS (3)
  - Thrombotic microangiopathy [Recovering/Resolving]
  - Drug eruption [Recovering/Resolving]
  - Febrile neutropenia [Recovered/Resolved]

NARRATIVE: CASE EVENT DATE: 2017
